APPROVED DRUG PRODUCT: CEFIXIME
Active Ingredient: CEFIXIME
Strength: 200MG/5ML 
Dosage Form/Route: FOR SUSPENSION;ORAL
Application: A211775 | Product #002 | TE Code: AB
Applicant: ALKEM LABORATORIES LTD
Approved: Feb 19, 2021 | RLD: No | RS: No | Type: RX